FAERS Safety Report 9753226 (Version 1)
Quarter: 2013Q4

REPORT INFORMATION
  Report Type: Spontaneous
  Country: US (occurrence: US)
  Receive Date: 20131213
  Receipt Date: 20131213
  Transmission Date: 20140711
  Serious: No
  Sender: FDA-Public Use
  Company Number: US-GILEAD-2010-0027624

PATIENT
  Sex: Female

DRUGS (7)
  1. LETAIRIS [Suspect]
     Indication: PULMONARY ARTERIAL HYPERTENSION
     Route: 048
     Dates: start: 20091030, end: 20100212
  2. EFFEXOR-XR [Suspect]
  3. LOPRESSOR [Suspect]
  4. BENZONATATE [Concomitant]
  5. VIVELLE-DOT [Concomitant]
  6. PREVACID [Concomitant]
  7. LIPITOR [Concomitant]

REACTIONS (2)
  - Sinusitis [Recovered/Resolved]
  - Nasal congestion [Recovered/Resolved]
